FAERS Safety Report 22215243 (Version 1)
Quarter: 2023Q2

REPORT INFORMATION
  Report Type: Spontaneous
  Country: US (occurrence: US)
  Receive Date: 20230415
  Receipt Date: 20230415
  Transmission Date: 20230721
  Serious: No
  Sender: FDA-Public Use
  Company Number: US-JNJFOC-20200344646

PATIENT
  Sex: Female
  Weight: 51.756 kg

DRUGS (2)
  1. IMODIUM MULTI-SYMPTOM RELIEF [Suspect]
     Active Substance: DIMETHICONE\LOPERAMIDE HYDROCHLORIDE
     Indication: Intestinal resection
     Dosage: 2 1/2 TABLET TWICE A DAY
     Route: 048
     Dates: start: 201412, end: 20200329
  2. IMODIUM MULTI-SYMPTOM RELIEF [Suspect]
     Active Substance: DIMETHICONE\LOPERAMIDE HYDROCHLORIDE
     Indication: General physical condition abnormal

REACTIONS (1)
  - Incorrect product administration duration [Unknown]
